FAERS Safety Report 5983189-2 (Version None)
Quarter: 2008Q4

REPORT INFORMATION
  Report Type: 
  Country: None (occurrence: None)
  Receive Date: 20081208
  Receipt Date: 20080305
  Transmission Date: 20090506
  Serious: No
  Sender: FDA-Public Use
  Company Number: US-AMGEN-KDL265839

PATIENT
  Sex: Female
  Weight: 34.1 kg

DRUGS (1)
  1. ENBREL [Suspect]
     Indication: RHEUMATOID ARTHRITIS
     Route: 058
     Dates: start: 20080108

REACTIONS (3)
  - DRUG INEFFECTIVE [None]
  - HEADACHE [None]
  - RHEUMATOID ARTHRITIS [None]
